FAERS Safety Report 7646509-9 (Version None)
Quarter: 2011Q3

REPORT INFORMATION
  Report Type: 
  Country: None (occurrence: None)
  Receive Date: 20110725
  Receipt Date: 20110719
  Transmission Date: 20111222
  Serious: Yes (Life-Threatening, Hospitalization, Other)
  Sender: FDA-Public Use
  Company Number: 2011SP033845

PATIENT
  Age: 46 Year
  Sex: Female
  Weight: 54 kg

DRUGS (8)
  1. ZOPLICONE   WELLBUTRIN   FLUOXETINE   VALACYCLOVIR [Concomitant]
  2. SEROQUEL [Concomitant]
  3. VALACYCLOVIR [Concomitant]
  4. PEGINTERFERON ALFA-2B [Suspect]
     Indication: HEPATITIS C
     Dosage: 100 MCG;QW;SC
     Route: 058
     Dates: start: 20101210, end: 20110708
  5. WELLBUTRIN [Concomitant]
  6. METHADONE HYDROCHLORIDE [Concomitant]
  7. FLUOXETINE [Concomitant]
  8. RIBAVIRIN [Suspect]
     Indication: HEPATITIS C
     Dosage: 1000 MG;QD;
     Dates: start: 20101210, end: 20110708

REACTIONS (2)
  - PNEUMONIA [None]
  - COMPUTERISED TOMOGRAM [None]
